FAERS Safety Report 23729737 (Version 2)
Quarter: 2025Q4

REPORT INFORMATION
  Report Type: Spontaneous
  Country: JP (occurrence: JP)
  Receive Date: 20240411
  Receipt Date: 20251015
  Transmission Date: 20260118
  Serious: Yes (Hospitalization, Other)
  Sender: AMGEN
  Company Number: JP-DSJP-DSJ-2024-115067

PATIENT
  Age: 81 Year
  Sex: Female

DRUGS (2)
  1. DENOSUMAB [Suspect]
     Active Substance: DENOSUMAB
     Indication: Osteoporosis
     Dosage: UNK
     Route: 065
  2. DENOSUMAB [Suspect]
     Active Substance: DENOSUMAB
     Dosage: UNK
     Route: 065

REACTIONS (2)
  - Compression fracture [Unknown]
  - Decreased appetite [Unknown]
